FAERS Safety Report 8835634 (Version 1)
Quarter: 2012Q4

REPORT INFORMATION
  Report Type: 
  Country: CO (occurrence: CO)
  Receive Date: 20121011
  Receipt Date: 20121011
  Transmission Date: 20130627
  Serious: Yes (Other)
  Sender: FDA-Public Use
  Company Number: CO-AMGEN-COLSP2012064311

PATIENT
  Age: 51 Year
  Sex: Female

DRUGS (10)
  1. ENBREL [Suspect]
     Dosage: 50 mg, weekly
     Route: 058
     Dates: start: 201208
  2. METOPROLOL [Concomitant]
     Indication: HYPERTENSION
     Dosage: 50 mg, 2x/day
     Route: 048
     Dates: start: 1997
  3. HYDROCHLOROTHIAZIDE [Concomitant]
     Indication: HYPERTENSION
     Dosage: 25 mg, 1x/day
     Route: 048
     Dates: start: 1997
  4. METHOTREXATE [Concomitant]
     Indication: RHEUMATOID ARTHRITIS
     Dosage: 3 tablets on Tuesdays and 3 tablets on Wednesdays of 2.5 mg
     Route: 065
     Dates: start: 1997
  5. ACETAMINOPHEN [Concomitant]
     Dosage: 300 mg, 3x/day
     Route: 065
  6. FOLIC ACID [Concomitant]
     Dosage: 1 mg, 1x/day
     Route: 065
  7. PREDNISOLON                        /00016201/ [Concomitant]
     Dosage: 5 mg, 2x/day
     Route: 065
  8. CALCIFORTE                         /01045901/ [Concomitant]
     Dosage: 600 mg, 1x/day
     Route: 065
  9. METFORMIN [Concomitant]
     Dosage: 850 mg, 2x/day after lunch
  10. ATORVASTATIN [Concomitant]
     Dosage: 20 mg, 1x/day at night
     Route: 065

REACTIONS (2)
  - Blood pressure increased [Recovered/Resolved]
  - Product quality issue [Unknown]
